FAERS Safety Report 12520815 (Version 2)
Quarter: 2016Q3

REPORT INFORMATION
  Report Type: Spontaneous
  Country: US (occurrence: US)
  Receive Date: 20160701
  Receipt Date: 20160902
  Transmission Date: 20161109
  Serious: No
  Sender: FDA-Public Use
  Company Number: US-PFIZER INC-2016287416

PATIENT
  Age: 6 Decade
  Sex: Female

DRUGS (5)
  1. WATER BACTERIOSTATIC [Suspect]
     Active Substance: WATER
     Dosage: UNK
  2. WATER BACTERIOSTATIC [Suspect]
     Active Substance: WATER
     Dosage: UNK
  3. WATER BACTERIOSTATIC [Suspect]
     Active Substance: WATER
     Dosage: UNK
  4. WATER BACTERIOSTATIC [Suspect]
     Active Substance: WATER
     Dosage: UNK
  5. VITRASE [Suspect]
     Active Substance: HYALURONIDASE, OVINE
     Dosage: UNK

REACTIONS (4)
  - Muscle rigidity [Unknown]
  - Swelling face [Unknown]
  - Erythema [Unknown]
  - Swelling [Unknown]
